FAERS Safety Report 4830118-0 (Version None)
Quarter: 2005Q4

REPORT INFORMATION
  Report Type: 
  Country: None (occurrence: None)
  Receive Date: 20051115
  Receipt Date: 20051115
  Transmission Date: 20060501
  Serious: Yes (Death, Hospitalization)
  Sender: FDA-Public Use
  Company Number: None

PATIENT
  Sex: Male
  Weight: 76 kg

DRUGS (2)
  1. BUSULFAN [Suspect]
     Indication: ACUTE MYELOID LEUKAEMIA
     Dosage: SEE IMAGE
     Dates: start: 20050810
  2. ETOPOSIDE [Suspect]
     Dosage: SEE IMAGE

REACTIONS (5)
  - ACUTE MYELOID LEUKAEMIA RECURRENT [None]
  - DYSARTHRIA [None]
  - ERYTHEMA [None]
  - HAEMORRHAGE INTRACRANIAL [None]
  - MALAISE [None]
